FAERS Safety Report 13943455 (Version 2)
Quarter: 2017Q3

REPORT INFORMATION
  Report Type: Spontaneous
  Country: GB (occurrence: GB)
  Receive Date: 20170907
  Receipt Date: 20170907
  Transmission Date: 20171128
  Serious: Yes (Death, Other)
  Sender: FDA-Public Use
  Company Number: GB-TEVA-802263ACC

PATIENT
  Age: 23 Year
  Sex: Male

DRUGS (4)
  1. PREGABALIN. [Interacting]
     Active Substance: PREGABALIN
     Route: 048
  2. ZOPICLONE [Interacting]
     Active Substance: ZOPICLONE
  3. DIAZEPAM. [Suspect]
     Active Substance: DIAZEPAM
  4. COCAINE [Interacting]
     Active Substance: COCAINE

REACTIONS (8)
  - Drug interaction [Fatal]
  - Drug abuse [Fatal]
  - Gait disturbance [Unknown]
  - Snoring [Unknown]
  - Loss of consciousness [Unknown]
  - Incoherent [Unknown]
  - Alcohol interaction [Fatal]
  - Cardiac failure [Fatal]

NARRATIVE: CASE EVENT DATE: 20170317
